FAERS Safety Report 4567240-2 (Version None)
Quarter: 2005Q1

REPORT INFORMATION
  Report Type: 
  Country: None (occurrence: None)
  Receive Date: 20050127
  Receipt Date: 19940811
  Transmission Date: 20050727
  Serious: Yes (Death)
  Sender: FDA-Public Use
  Company Number: KII-1994-0014779

PATIENT
  Sex: Female

DRUGS (1)
  1. MS CONTIN [Suspect]

REACTIONS (2)
  - RESPIRATORY DISORDER [None]
  - SOMNOLENCE [None]
